FAERS Safety Report 8948742 (Version 1)
Quarter: 2012Q4

REPORT INFORMATION
  Report Type: 
  Country: DE (occurrence: DE)
  Receive Date: 20121206
  Receipt Date: 20121206
  Transmission Date: 20130627
  Serious: Yes (Disabling)
  Sender: FDA-Public Use
  Company Number: DE-ROCHE-1150046

PATIENT
  Age: 58 None
  Sex: Female
  Weight: 49 kg

DRUGS (8)
  1. BONVIVA [Suspect]
     Indication: OSTEOPOROSIS
     Route: 042
     Dates: start: 20120215
  2. DEKRISTOL [Concomitant]
     Route: 065
  3. LEVODOPA [Concomitant]
     Route: 065
  4. METHOTREXATE [Concomitant]
     Route: 058
  5. FOLIC ACID [Concomitant]
     Route: 065
  6. PREDNISOLON [Concomitant]
     Route: 065
  7. ATARAX [Concomitant]
     Route: 065
  8. TILIDIN HEXAL COMP [Concomitant]
     Route: 065

REACTIONS (3)
  - Injection site necrosis [Recovered/Resolved with Sequelae]
  - Swelling [Recovered/Resolved with Sequelae]
  - Inflammation [Recovered/Resolved with Sequelae]
